FAERS Safety Report 5481023-0 (Version None)
Quarter: 2007Q4

REPORT INFORMATION
  Report Type: 
  Country: None (occurrence: None)
  Receive Date: 20071004
  Receipt Date: 20070904
  Transmission Date: 20080405
  Serious: Yes (Life-Threatening)
  Sender: FDA-Public Use
  Company Number: JP-GUERBET-20070054

PATIENT
  Age: 77 Year
  Sex: Male
  Weight: 24.0406 kg

DRUGS (8)
  1. DOTAREM: / MEGLUMINE GADOTERATE [Suspect]
     Indication: NUCLEAR MAGNETIC RESONANCE IMAGING
     Dosage: DOSAGE: 10, ML MILLILITRE (S), 1, 1 TOTAL INTRAVENOUS (NOT OTHERWISE SPECIFIED)
     Route: 042
     Dates: start: 20070904, end: 20070904
  2. WARFARIN SODIUM [Concomitant]
  3. LANSOPRAZOLE [Concomitant]
  4. ALLOPURINOL [Concomitant]
  5. GLEEVEC [Concomitant]
  6. GASTROM / ECABET SODIUM [Concomitant]
  7. LASIX [Concomitant]
  8. ALDACTONE [Concomitant]

REACTIONS (5)
  - BLOOD PH INCREASED [None]
  - CARDIAC ARREST [None]
  - HYPOTENSION [None]
  - LOSS OF CONSCIOUSNESS [None]
  - RESPIRATORY ARREST [None]
